FAERS Safety Report 10668559 (Version 1)
Quarter: 2014Q4

REPORT INFORMATION
  Report Type: Spontaneous
  Country: US (occurrence: None)
  Receive Date: 20141217
  Receipt Date: 20141217
  Transmission Date: 20150529
  Serious: No
  Sender: FDA-Public Use
  Company Number: 2014CT000142

PATIENT
  Age: 55 Year
  Sex: Female
  Weight: 184 kg

DRUGS (4)
  1. LISINOPRIL. [Concomitant]
     Active Substance: LISINOPRIL
  2. KORLYM [Suspect]
     Active Substance: MIFEPRISTONE
     Indication: CUSHING^S SYNDROME
     Route: 048
     Dates: start: 20140722
  3. FUROSEMIDE. [Concomitant]
     Active Substance: FUROSEMIDE
  4. LEVOTHYROXINE [Concomitant]
     Active Substance: LEVOTHYROXINE

REACTIONS (10)
  - Balance disorder [None]
  - Musculoskeletal discomfort [None]
  - Muscle tightness [None]
  - Pain [None]
  - Fatigue [None]
  - Headache [None]
  - Weight increased [None]
  - Arthralgia [None]
  - Sciatica [None]
  - Myalgia [None]

NARRATIVE: CASE EVENT DATE: 20140729
